FAERS Safety Report 11841201 (Version 5)
Quarter: 2019Q4

REPORT INFORMATION
  Report Type: Report from Study
  Country: BE (occurrence: BE)
  Receive Date: 20151216
  Receipt Date: 20191113
  Transmission Date: 20200122
  Serious: Yes (Hospitalization)
  Sender: FDA-Public Use
  Company Number: PHHY2015BE144113

PATIENT
  Age: 26 Year
  Sex: Male
  Weight: 70.5 kg

DRUGS (3)
  1. GILENYA [Suspect]
     Active Substance: FINGOLIMOD HYDROCHLORIDE
     Dosage: UNK, QD
     Route: 048
  2. LEMTRADA [Suspect]
     Active Substance: ALEMTUZUMAB
     Indication: PRODUCT USED FOR UNKNOWN INDICATION
     Dosage: 12 MG,
     Route: 042
     Dates: start: 20140825, end: 20150829
  3. GILENYA [Suspect]
     Active Substance: FINGOLIMOD HYDROCHLORIDE
     Indication: MULTIPLE SCLEROSIS
     Dosage: 0.5 MG, QD
     Route: 048
     Dates: start: 20131121, end: 20140701

REACTIONS (15)
  - Herpes zoster oticus [Recovered/Resolved with Sequelae]
  - Rash [Recovered/Resolved]
  - Alopecia areata [Unknown]
  - Low density lipoprotein increased [Unknown]
  - Otitis media acute [Recovered/Resolved]
  - Nasopharyngitis [Unknown]
  - Bacterial infection [Unknown]
  - White blood cell count increased [Unknown]
  - Lymphocyte percentage decreased [Unknown]
  - Rhinitis allergic [Unknown]
  - Oropharyngeal pain [Recovered/Resolved]
  - Sinusitis [Unknown]
  - Blood cholesterol increased [Unknown]
  - Balance disorder [Recovered/Resolved]
  - Skin lesion [Recovered/Resolved]

NARRATIVE: CASE EVENT DATE: 20141110
